FAERS Safety Report 25099188 (Version 1)
Quarter: 2025Q1

REPORT INFORMATION
  Report Type: Spontaneous
  Country: US (occurrence: US)
  Receive Date: 20250320
  Receipt Date: 20250320
  Transmission Date: 20250409
  Serious: No
  Sender: MICRO LABS
  Company Number: US-862174955-ML2025-01334

PATIENT
  Age: 87 Year
  Sex: Male

DRUGS (1)
  1. DORZOLAMIDE HYDROCHLORIDE AND TIMOLOL MALEATE OPHTHALMIC SOLUTION [Suspect]
     Active Substance: DORZOLAMIDE HYDROCHLORIDE\TIMOLOL MALEATE
     Indication: Product used for unknown indication
     Route: 047
     Dates: start: 202503

REACTIONS (2)
  - Product container issue [Unknown]
  - Underdose [Unknown]

NARRATIVE: CASE EVENT DATE: 20250301
